FAERS Safety Report 8278793-5 (Version None)
Quarter: 2012Q2

REPORT INFORMATION
  Report Type: 
  Country: None (occurrence: None)
  Receive Date: 20120412
  Receipt Date: 20110415
  Transmission Date: 20120825
  Serious: No
  Sender: FDA-Public Use
  Company Number: US-ASTRAZENECA-2011SE21770

PATIENT
  Age: 70 Year
  Sex: Female
  Weight: 72.6 kg

DRUGS (5)
  1. LOTREL [Concomitant]
  2. NEXIUM [Suspect]
     Route: 048
  3. LOTRIMIN [Concomitant]
  4. NEXIUM [Suspect]
     Indication: GASTROOESOPHAGEAL REFLUX DISEASE
     Route: 048
  5. NOVOLOG [Concomitant]

REACTIONS (3)
  - HELICOBACTER INFECTION [None]
  - URINE ODOUR ABNORMAL [None]
  - GASTRIC ULCER [None]
